FAERS Safety Report 6874758-6 (Version None)
Quarter: 2010Q3

REPORT INFORMATION
  Report Type: 
  Country: None (occurrence: None)
  Receive Date: 20100723
  Receipt Date: 20100716
  Transmission Date: 20110219
  Serious: Yes (Other)
  Sender: FDA-Public Use
  Company Number: RB-10608-2010

PATIENT
  Age: 51 Year
  Sex: Female

DRUGS (4)
  1. SUBOXONE [Suspect]
     Indication: DRUG DEPENDENCE
     Dosage: 8 MG BID SUBLINGUAL, 8 MG TID SUBLINGUAL
     Route: 060
     Dates: start: 20100519, end: 20100501
  2. SUBOXONE [Suspect]
     Indication: DRUG DEPENDENCE
     Dosage: 8 MG BID SUBLINGUAL, 8 MG TID SUBLINGUAL
     Route: 060
     Dates: start: 20100501
  3. GABAPENTIN [Suspect]
     Indication: DRUG WITHDRAWAL SYNDROME
     Dosage: UNKNOWN DOSING DETAILS UNKNOWN)
     Dates: start: 20100519, end: 20100501
  4. SYNTHROID [Concomitant]

REACTIONS (11)
  - AGITATION [None]
  - ANXIETY [None]
  - CONSTIPATION [None]
  - FEAR [None]
  - FEELING ABNORMAL [None]
  - FEELING COLD [None]
  - HALLUCINATION [None]
  - HYPOPHAGIA [None]
  - INSOMNIA [None]
  - KIDNEY INFECTION [None]
  - TREMOR [None]
